FAERS Safety Report 25210543 (Version 3)
Quarter: 2025Q3

REPORT INFORMATION
  Report Type: Spontaneous
  Country: US (occurrence: US)
  Receive Date: 20250417
  Receipt Date: 20250807
  Transmission Date: 20251021
  Serious: No
  Sender: PFIZER
  Company Number: US-PFIZER INC-202500071227

PATIENT
  Age: 81 Year
  Sex: Female
  Weight: 61.995 kg

DRUGS (3)
  1. MEKTOVI [Suspect]
     Active Substance: BINIMETINIB
     Indication: Lung neoplasm malignant
     Dosage: 45 MG, DAILY
     Route: 048
  2. MEKTOVI [Suspect]
     Active Substance: BINIMETINIB
     Dosage: 45 MG, 2X/DAY, TAKE 3 TABLETS BY MOUTH 2 TIMES DAILY
     Route: 048
  3. BRAFTOVI [Concomitant]
     Active Substance: ENCORAFENIB
     Dosage: 450 MG, DAILY
     Route: 048

REACTIONS (2)
  - Dyspnoea [Unknown]
  - Off label use [Unknown]
